FAERS Safety Report 9334596 (Version 2)
Quarter: 2014Q2

REPORT INFORMATION
  Report Type: Spontaneous
  Country: US (occurrence: US)
  Receive Date: 20130606
  Receipt Date: 20140519
  Transmission Date: 20141212
  Serious: No
  Sender: FDA-Public Use
  Company Number: US-AMGEN-USASP2013024768

PATIENT
  Age: 73 Year
  Sex: Female

DRUGS (4)
  1. PROLIA [Suspect]
     Indication: OSTEOPOROSIS POSTMENOPAUSAL
     Dosage: 60 MG, Q6MO
     Route: 065
     Dates: start: 201303
  2. MULTIVITAMIN                       /00097801/ [Concomitant]
     Dosage: UNK
     Route: 065
  3. CALCIUM WITH VITAMIN D             /00944201/ [Concomitant]
     Dosage: 1000 MG, QD
     Route: 065
  4. VITAMIN C                          /00008001/ [Concomitant]

REACTIONS (14)
  - Rash papular [Recovered/Resolved]
  - Rash pruritic [Recovering/Resolving]
  - Rash macular [Recovered/Resolved]
  - Rash erythematous [Recovering/Resolving]
  - Myalgia [Unknown]
  - Back pain [Unknown]
  - Mouth ulceration [Unknown]
  - Chills [Unknown]
  - Hypersensitivity [Recovering/Resolving]
  - Nasal congestion [Recovering/Resolving]
  - Rhinorrhoea [Recovering/Resolving]
  - Throat irritation [Unknown]
  - Cough [Unknown]
  - Alopecia [Unknown]
